FAERS Safety Report 9279248 (Version 3)
Quarter: 2014Q4

REPORT INFORMATION
  Report Type: Spontaneous
  Country: SE (occurrence: None)
  Receive Date: 20130501
  Receipt Date: 20141110
  Transmission Date: 20150529
  Serious: Yes (Other)
  Sender: FDA-Public Use
  Company Number: NGX_01532_2012

PATIENT
  Age: 43 Year
  Sex: Male

DRUGS (2)
  1. NITRAZEPAM [Concomitant]
     Active Substance: NITRAZEPAM
  2. QUTENZA [Suspect]
     Active Substance: CAPSAICIN
     Indication: PHANTOM PAIN
     Dosage: (DF [APPLIED TO STUMP] TOPICAL)
     Route: 061
     Dates: start: 20121203, end: 20121203

REACTIONS (9)
  - Drug ineffective [None]
  - Hyperaesthesia [None]
  - Application site scab [None]
  - Wound [None]
  - Off label use [None]
  - Application site pain [None]
  - Drug eruption [None]
  - Application site reaction [None]
  - Skin irritation [None]

NARRATIVE: CASE EVENT DATE: 20121203
